FAERS Safety Report 9353186 (Version 2)
Quarter: 2013Q3

REPORT INFORMATION
  Report Type: Spontaneous
  Country: US (occurrence: US)
  Receive Date: 20130618
  Receipt Date: 20130715
  Transmission Date: 20140515
  Serious: Yes (Other)
  Sender: FDA-Public Use
  Company Number: US-PFIZER INC-2013179060

PATIENT
  Age: 3 Week
  Sex: Male

DRUGS (3)
  1. GENOTROPIN [Suspect]
     Indication: HYPOPITUITARISM
     Dosage: 0.12 MG, UNK
     Route: 058
     Dates: start: 20130607
  2. PREDNISOLONE [Concomitant]
     Indication: HYPOPITUITARISM
     Dosage: 0.1 ML, 2X/DAY
     Dates: start: 20130522
  3. SYNTHROID [Concomitant]
     Indication: HYPOPITUITARISM
     Dosage: 25 UG, 1X/DAY
     Dates: start: 20130522

REACTIONS (2)
  - Pyloric stenosis [Recovered/Resolved]
  - Vomiting [Recovered/Resolved]
